FAERS Safety Report 20655431 (Version 3)
Quarter: 2022Q2

REPORT INFORMATION
  Report Type: Spontaneous
  Country: US (occurrence: None)
  Receive Date: 20220330
  Receipt Date: 20220517
  Transmission Date: 20220721
  Serious: No
  Sender: FDA-Public Use
  Company Number: 2022A120592

PATIENT
  Sex: Male
  Weight: 64.4 kg

DRUGS (1)
  1. TUDORZA PRESSAIR [Suspect]
     Active Substance: ACLIDINIUM BROMIDE
     Indication: Chronic obstructive pulmonary disease
     Route: 055
     Dates: start: 2018

REACTIONS (6)
  - Dyspnoea [Unknown]
  - Asthenia [Unknown]
  - Product dose omission issue [Unknown]
  - Intentional device misuse [Unknown]
  - Wrong technique in device usage process [Unknown]
  - Device malfunction [Unknown]
